FAERS Safety Report 7304234-8 (Version None)
Quarter: 2011Q1

REPORT INFORMATION
  Report Type: 
  Country: None (occurrence: None)
  Receive Date: 20110221
  Receipt Date: 20110209
  Transmission Date: 20110831
  Serious: Yes (Other)
  Sender: FDA-Public Use
  Company Number: US-BAYER-2011-013854

PATIENT
  Sex: Female
  Weight: 122.45 kg

DRUGS (1)
  1. MIRENA [Suspect]
     Dosage: UNK UNK, CONT
     Route: 015
     Dates: start: 20110101

REACTIONS (3)
  - UTERINE PERFORATION [None]
  - DEVICE DISLOCATION [None]
  - PAIN [None]
